FAERS Safety Report 24547223 (Version 3)
Quarter: 2025Q4

REPORT INFORMATION
  Report Type: Spontaneous
  Country: EU (occurrence: EU)
  Receive Date: 20241025
  Receipt Date: 20251009
  Transmission Date: 20260118
  Serious: Yes (Hospitalization, Other)
  Sender: AUROBINDO
  Company Number: EU-Adamed-2024-AER-00407

PATIENT
  Age: 21 Year
  Sex: Female

DRUGS (1)
  1. BUDESONIDE [Suspect]
     Active Substance: BUDESONIDE
     Indication: Asthma
     Dosage: UNK (TAKEN FOR HALF A YEAR BEFORE ADMISSION TO THE CLINIC)

REACTIONS (1)
  - Adrenal insufficiency [Recovering/Resolving]
